FAERS Safety Report 16197691 (Version 1)
Quarter: 2019Q2

REPORT INFORMATION
  Report Type: Report from Study
  Country: US (occurrence: US)
  Receive Date: 20190415
  Receipt Date: 20190415
  Transmission Date: 20190711
  Serious: Yes (Other)
  Sender: FDA-Public Use
  Company Number: US-SA-2019SA098720

PATIENT
  Age: 72 Year
  Sex: Male

DRUGS (2)
  1. APIDRA [Concomitant]
     Active Substance: INSULIN GLULISINE
     Indication: TYPE 2 DIABETES MELLITUS
     Dosage: 15 U, QD
     Route: 058
  2. INSULIN GLARGINE [Suspect]
     Active Substance: INSULIN GLARGINE
     Indication: TYPE 2 DIABETES MELLITUS
     Dosage: 50 U, QD
     Route: 058

REACTIONS (8)
  - Knee deformity [Recovered/Resolved]
  - Balance disorder [Recovered/Resolved]
  - Limb deformity [Recovered/Resolved]
  - Gait disturbance [Recovered/Resolved]
  - Cardiac disorder [Recovered/Resolved]
  - Fall [Unknown]
  - Facial bones fracture [Recovered/Resolved]
  - Peripheral swelling [Recovered/Resolved]
